FAERS Safety Report 15126522 (Version 2)
Quarter: 2018Q3

REPORT INFORMATION
  Report Type: Spontaneous
  Country: KZ (occurrence: KZ)
  Receive Date: 20180710
  Receipt Date: 20180906
  Transmission Date: 20181010
  Serious: Yes (Death, Hospitalization)
  Sender: FDA-Public Use
  Company Number: KZ-JNJFOC-20180710833

PATIENT
  Sex: Male
  Weight: 90 kg

DRUGS (6)
  1. DIGOXIN. [Concomitant]
     Active Substance: DIGOXIN
     Route: 065
  2. CONCOR [Concomitant]
     Active Substance: BISOPROLOL FUMARATE
     Route: 065
  3. TORSEMIDE. [Concomitant]
     Active Substance: TORSEMIDE
     Indication: CARDIAC FAILURE
     Route: 065
  4. XARELTO [Suspect]
     Active Substance: RIVAROXABAN
     Indication: ATRIAL FIBRILLATION
     Route: 048
     Dates: start: 201710
  5. VEROSPIRON [Concomitant]
     Active Substance: SPIRONOLACTONE
     Route: 065
  6. ENAP [Concomitant]
     Active Substance: ENALAPRIL
     Route: 065

REACTIONS (5)
  - Brain oedema [Fatal]
  - Subarachnoid haemorrhage [Fatal]
  - Haemorrhagic stroke [Fatal]
  - Coma [Fatal]
  - Treatment noncompliance [Fatal]

NARRATIVE: CASE EVENT DATE: 20180705
